FAERS Safety Report 6188995-X (Version None)
Quarter: 2009Q2

REPORT INFORMATION
  Report Type: 
  Country: None (occurrence: None)
  Receive Date: 20090513
  Receipt Date: 20090316
  Transmission Date: 20091009
  Serious: Yes (Hospitalization, Other)
  Sender: FDA-Public Use
  Company Number: JP-ABBOTT-09P-087-0562567-00

PATIENT
  Sex: Female
  Weight: 32.3 kg

DRUGS (22)
  1. CLARITHROMYCIN [Suspect]
     Indication: INFECTION
     Route: 048
     Dates: start: 20070705, end: 20070708
  2. ANHIBA [Suspect]
     Indication: PYREXIA
     Dates: start: 20070702, end: 20070702
  3. MINOCYCLINE HYDROCHLORIDE [Suspect]
     Indication: INFECTION
     Route: 048
     Dates: start: 20070705, end: 20070706
  4. FAMOTIDINE [Suspect]
     Indication: ABDOMINAL PAIN UPPER
     Route: 048
     Dates: start: 20070705, end: 20070708
  5. FILGRASTIM [Suspect]
     Indication: PANCYTOPENIA
     Route: 042
     Dates: start: 20070705, end: 20070705
  6. FAMOTIDINE [Concomitant]
     Route: 048
     Dates: start: 20070702, end: 20070702
  7. FAMOTIDINE [Concomitant]
     Indication: GASTRIC ULCER
     Dates: start: 20070702, end: 20070703
  8. FAMOTIDINE [Concomitant]
     Route: 042
     Dates: start: 20070703, end: 20070704
  9. FAMOTIDINE [Concomitant]
     Route: 048
     Dates: start: 20070705, end: 20070708
  10. CLOSTRIDIUM BUTYRICUM [Concomitant]
     Indication: PROPHYLAXIS AGAINST DIARRHOEA
     Route: 048
     Dates: start: 20070702, end: 20070703
  11. CLOSTRIDIUM BUTYRICUM [Concomitant]
     Route: 048
     Dates: start: 20070705, end: 20070705
  12. CLOSTRIDIUM BUTYRICUM [Concomitant]
     Route: 048
     Dates: start: 20070706, end: 20070708
  13. MINOCYCLINE HYDROCHLORIDE [Concomitant]
     Route: 048
     Dates: start: 20070703, end: 20070704
  14. CARBOCYSTEINE (MUCODYNE TAB) [Concomitant]
     Indication: SINUSITIS
     Route: 048
     Dates: start: 20070703, end: 20070707
  15. LYSOZYME HYDROCHLORIDE (NEUZYM TAB) [Concomitant]
     Indication: SINUSITIS
     Route: 048
     Dates: start: 20070703, end: 20070707
  16. PREDNISOLONE [Concomitant]
     Indication: PANCYTOPENIA
     Route: 048
     Dates: start: 20070705, end: 20070708
  17. ACETAMINOPHEN [Concomitant]
     Indication: PYREXIA
     Route: 048
     Dates: start: 20070702, end: 20070702
  18. CEFTRIAXONE [Concomitant]
     Indication: INFECTION
     Route: 042
     Dates: start: 20070702, end: 20070702
  19. CEFTRIAXONE [Concomitant]
     Route: 042
     Dates: start: 20070703, end: 20070704
  20. DEXAMETHASONE SODIUM PHOSPHATE [Concomitant]
     Indication: PANCYTOPENIA
     Route: 042
     Dates: start: 20070703, end: 20070704
  21. DEHYDRATION SUPPLEMENT [Concomitant]
     Indication: DEHYDRATION
     Route: 042
     Dates: start: 20070702, end: 20070703
  22. MAINTENANCE MEDIUM [Concomitant]
     Indication: DEHYDRATION
     Route: 042
     Dates: start: 20070703, end: 20070703

REACTIONS (1)
  - ERYTHEMA MULTIFORME [None]
